FAERS Safety Report 8546402-3 (Version None)
Quarter: 2012Q3

REPORT INFORMATION
  Report Type: 
  Country: None (occurrence: None)
  Receive Date: 20120727
  Receipt Date: 20120305
  Transmission Date: 20120928
  Serious: No
  Sender: FDA-Public Use
  Company Number: US-ASTRAZENECA-2012SE00945

PATIENT
  Age: 23 Year
  Sex: Female
  Weight: 60.8 kg

DRUGS (12)
  1. SEROQUEL XR [Suspect]
     Indication: POST-TRAUMATIC STRESS DISORDER
     Route: 048
  2. SEROQUEL XR [Suspect]
     Indication: DEPRESSION
     Route: 048
  3. SEROQUEL XR [Suspect]
     Route: 048
  4. SEROQUEL XR [Suspect]
     Route: 048
  5. SPRINTEC [Concomitant]
     Indication: ORAL CONTRACEPTION
     Route: 065
  6. SEROQUEL XR [Suspect]
     Route: 048
  7. SEROQUEL XR [Suspect]
     Indication: INSOMNIA
     Route: 048
  8. SEROQUEL XR [Suspect]
     Indication: MUSCLE SPASMS
     Route: 048
  9. PAXIL [Concomitant]
  10. ZANTAC [Concomitant]
  11. XANAX [Concomitant]
  12. SEROQUEL XR [Suspect]
     Route: 048

REACTIONS (8)
  - DRUG DOSE OMISSION [None]
  - FATIGUE [None]
  - OFF LABEL USE [None]
  - DISORIENTATION [None]
  - THINKING ABNORMAL [None]
  - DRUG EFFECT DELAYED [None]
  - INSOMNIA [None]
  - SOMNOLENCE [None]
